FAERS Safety Report 5310144-8 (Version None)
Quarter: 2007Q2

REPORT INFORMATION
  Report Type: 
  Country: None (occurrence: None)
  Receive Date: 20070427
  Receipt Date: 20070425
  Transmission Date: 20071010
  Serious: Yes (Other)
  Sender: FDA-Public Use
  Company Number: CN-JNJFOC-20070403118

PATIENT
  Age: 30 Year
  Sex: Male
  Weight: 72 kg

DRUGS (3)
  1. TYLENOL (CAPLET) [Suspect]
  2. TYLENOL (CAPLET) [Suspect]
     Indication: PYREXIA
  3. TYLENOL [Suspect]
     Indication: NASOPHARYNGITIS
     Route: 048

REACTIONS (4)
  - ANAEMIA [None]
  - DRUG INEFFECTIVE [None]
  - LEUKOPENIA [None]
  - THROMBOCYTOPENIA [None]
